FAERS Safety Report 5490897-9 (Version None)
Quarter: 2007Q4

REPORT INFORMATION
  Report Type: 
  Country: None (occurrence: None)
  Receive Date: 20071019
  Receipt Date: 20071009
  Transmission Date: 20080405
  Serious: Yes (Hospitalization)
  Sender: FDA-Public Use
  Company Number: FR-AMGEN-UK242120

PATIENT
  Sex: Male

DRUGS (24)
  1. KEPIVANCE [Suspect]
     Indication: MUCOSAL INFLAMMATION
     Route: 042
     Dates: start: 20070212
  2. RITUXAN [Concomitant]
     Route: 042
     Dates: start: 20060608
  3. ETOPOSIDE [Concomitant]
     Route: 042
  4. CYTARABINE [Concomitant]
  5. ZEVALIN [Concomitant]
     Dates: start: 20070208
  6. MELPHALAN [Concomitant]
  7. CARMUSTINE [Concomitant]
     Route: 042
     Dates: start: 20070216, end: 20070216
  8. GRANOCYTE [Concomitant]
     Dates: start: 20070223
  9. HEPARIN [Concomitant]
     Dates: start: 20070216, end: 20070307
  10. ZOFRAN [Concomitant]
  11. EMEND [Concomitant]
  12. TAZOCILLINE [Concomitant]
     Dates: start: 20070219, end: 20070227
  13. FORTUM [Concomitant]
     Dates: start: 20070227, end: 20070228
  14. CIFLOX [Concomitant]
     Dates: start: 20070219, end: 20070314
  15. FLAGYL [Concomitant]
     Dates: start: 20070222, end: 20070314
  16. VANCOMYCIN HCL [Concomitant]
     Dates: start: 20070225, end: 20070314
  17. TIENAM [Concomitant]
     Dates: start: 20070301, end: 20070314
  18. CASPOFUNGIN [Concomitant]
     Dates: start: 20070308, end: 20070314
  19. VORICONAZOLE [Concomitant]
     Dates: start: 20070309, end: 20070311
  20. VALACYCLOVIR HCL [Concomitant]
     Dates: start: 20070208, end: 20070221
  21. ZOVIRAX [Concomitant]
     Dates: start: 20070222, end: 20070311
  22. BACTRIM [Concomitant]
     Dates: start: 20070306
  23. AMIKLIN [Concomitant]
     Dates: start: 20070306
  24. AMBISOME [Concomitant]
     Dates: start: 20070312

REACTIONS (2)
  - PANCYTOPENIA [None]
  - PYREXIA [None]
